FAERS Safety Report 19635251 (Version 3)
Quarter: 2022Q1

REPORT INFORMATION
  Report Type: Spontaneous
  Country: US (occurrence: US)
  Receive Date: 20210729
  Receipt Date: 20220203
  Transmission Date: 20220424
  Serious: No
  Sender: FDA-Public Use
  Company Number: US-PFIZER INC-2021424249

PATIENT
  Age: 43 Year
  Sex: Female

DRUGS (1)
  1. IBRANCE [Suspect]
     Active Substance: PALBOCICLIB
     Indication: Breast cancer
     Dosage: 125 MG, CYCLIC [125 MG DAILY FOR 21 DAYS AND OFF FOR 7 DAYS]
     Route: 048
     Dates: start: 20210320

REACTIONS (7)
  - White blood cell count decreased [Not Recovered/Not Resolved]
  - Malaise [Recovering/Resolving]
  - Hot flush [Unknown]
  - Pruritus [Recovered/Resolved]
  - Neoplasm progression [Unknown]
  - Nasopharyngitis [Unknown]
  - Depression [Unknown]
